FAERS Safety Report 5155941-7 (Version None)
Quarter: 2006Q4

REPORT INFORMATION
  Report Type: 
  Country: None (occurrence: None)
  Receive Date: 20061114
  Receipt Date: 20061030
  Transmission Date: 20070319
  Serious: Yes (Hospitalization, Other)
  Sender: FDA-Public Use
  Company Number: 2006132597

PATIENT
  Sex: Male
  Weight: 87.0906 kg

DRUGS (4)
  1. VIAGRA [Suspect]
     Indication: SEXUAL DYSFUNCTION
     Dates: end: 20060801
  2. COZAAR [Concomitant]
  3. HYDROCHLOROTHIAZIDE [Concomitant]
  4. ASPIRIN [Concomitant]

REACTIONS (11)
  - CONVULSION [None]
  - FLUSHING [None]
  - GLOSSODYNIA [None]
  - INCOHERENT [None]
  - MUSCLE INJURY [None]
  - MUSCULOSKELETAL PAIN [None]
  - ROTATOR CUFF SYNDROME [None]
  - SWOLLEN TONGUE [None]
  - TINNITUS [None]
  - UNRESPONSIVE TO STIMULI [None]
  - VISUAL DISTURBANCE [None]
